FAERS Safety Report 8820575 (Version 1)
Quarter: 2012Q4

REPORT INFORMATION
  Report Type: 
  Country: GB (occurrence: GB)
  Receive Date: 20121002
  Receipt Date: 20121002
  Transmission Date: 20130627
  Serious: Yes (Hospitalization)
  Sender: FDA-Public Use
  Company Number: GB-PFIZER INC-2012240086

PATIENT
  Sex: Female
  Weight: 65.8 kg

DRUGS (7)
  1. SOMATROPIN [Suspect]
     Dosage: 0.2 mg, 7/wk
     Route: 058
     Dates: start: 20060502
  2. DDAVP [Concomitant]
     Indication: BLOOD ANTIDIURETIC HORMONE DECREASED
     Dosage: UNK
     Dates: start: 20000228
  3. THYROXINE [Concomitant]
     Indication: BLOOD THYROID STIMULATING HORMONE DECREASED
     Dosage: UNK
     Dates: start: 20031017
  4. THYROXINE [Concomitant]
     Indication: PRIMARY HYPOTHYROIDISM
  5. HYDROCORTISONE [Concomitant]
     Indication: BLOOD CORTICOTROPHIN DECREASED
     Dosage: UNK
     Dates: start: 20050701
  6. LANSOPRAZOLE [Concomitant]
     Indication: EPIGASTRIC DISCOMFORT
     Dosage: UNK
     Dates: start: 20050701
  7. SIMVASTATIN [Concomitant]
     Indication: HYPERCHOLESTEROLAEMIA
     Dosage: UNK
     Dates: start: 20060505

REACTIONS (1)
  - Blood growth hormone abnormal [Unknown]
